FAERS Safety Report 6231879-9 (Version None)
Quarter: 2009Q2

REPORT INFORMATION
  Report Type: 
  Country: None (occurrence: None)
  Receive Date: 20090612
  Receipt Date: 20090612
  Transmission Date: 20091009
  Serious: Yes (Death)
  Sender: FDA-Public Use
  Company Number: None

PATIENT
  Age: 68 Year
  Sex: Male
  Weight: 45.8133 kg

DRUGS (10)
  1. ISONIAZID [Suspect]
     Indication: LATENT TUBERCULOSIS
     Dosage: 900 MG PO TWICE WEEKLY PO
     Route: 048
     Dates: start: 20080417, end: 20081103
  2. ISONIAZID [Suspect]
     Indication: TUBERCULIN TEST
     Dosage: 900 MG PO TWICE WEEKLY PO
     Route: 048
     Dates: start: 20080417, end: 20081103
  3. IPRATROPIUM BROMIDE [Concomitant]
  4. ADVAIR HFA [Concomitant]
  5. MONTELUKAST [Concomitant]
  6. ALBUTEROL [Concomitant]
  7. METHOCARBAMOL [Concomitant]
  8. RANITIDINE [Concomitant]
  9. NAPROSYN [Concomitant]
  10. PYROXIDINE [Concomitant]

REACTIONS (2)
  - DRUG TOXICITY [None]
  - HEPATIC NECROSIS [None]
